FAERS Safety Report 23637707 (Version 1)
Quarter: 2024Q1

REPORT INFORMATION
  Report Type: Spontaneous
  Country: US (occurrence: None)
  Receive Date: 20240315
  Receipt Date: 20240315
  Transmission Date: 20240410
  Serious: Yes (Other)
  Sender: FDA-Public Use
  Company Number: None

PATIENT
  Age: 48 Year
  Sex: Female
  Weight: 81.45 kg

DRUGS (12)
  1. MOUNJARO [Suspect]
     Active Substance: TIRZEPATIDE
     Indication: Type 2 diabetes mellitus
     Dosage: OTHER QUANTITY : 1 INJECTION(S);?OTHER FREQUENCY : ONCE A WEEK;?
     Route: 058
     Dates: start: 20240312
  2. WELLBUTRIN [Concomitant]
     Active Substance: BUPROPION HYDROCHLORIDE
  3. PROTONIX [Concomitant]
     Active Substance: PANTOPRAZOLE SODIUM
  4. VITAMINS [Concomitant]
     Active Substance: VITAMINS
  5. VITAMIN C [Concomitant]
     Active Substance: ASCORBIC ACID
  6. VITAMIN D [Concomitant]
     Active Substance: VITAMIN D NOS
  7. L lysine [Concomitant]
  8. FIBER [Concomitant]
  9. FISH OIL [Concomitant]
     Active Substance: FISH OIL
  10. MELATONIN [Concomitant]
     Active Substance: MELATONIN
  11. TUMS [Concomitant]
     Active Substance: CALCIUM CARBONATE
  12. VITAMIN B12 [Concomitant]
     Active Substance: CYANOCOBALAMIN

REACTIONS (21)
  - Hyperaesthesia [None]
  - Pain [None]
  - Therapeutic product effect decreased [None]
  - Pain of skin [None]
  - Pain of skin [None]
  - Neck pain [None]
  - Musculoskeletal pain [None]
  - Musculoskeletal chest pain [None]
  - Bone pain [None]
  - Back pain [None]
  - Insomnia [None]
  - Arthralgia [None]
  - Pain in extremity [None]
  - Pain in extremity [None]
  - Loss of personal independence in daily activities [None]
  - Headache [None]
  - Pain in extremity [None]
  - Sensitive skin [None]
  - Crying [None]
  - Erythema [None]
  - Feeling hot [None]

NARRATIVE: CASE EVENT DATE: 20240312
